FAERS Safety Report 10213473 (Version 1)
Quarter: 2014Q2

REPORT INFORMATION
  Report Type: Spontaneous
  Country: IT (occurrence: None)
  Receive Date: 20140529
  Receipt Date: 20140529
  Transmission Date: 20141212
  Serious: Yes (Hospitalization)
  Sender: FDA-Public Use
  Company Number: 2014AP003022

PATIENT
  Age: 5 Year
  Sex: Male

DRUGS (1)
  1. CETIRIZINE [Suspect]
     Indication: RHINITIS ALLERGIC
     Route: 048
     Dates: start: 20140408, end: 20140417

REACTIONS (2)
  - Medication error [None]
  - Tachycardia [None]
